FAERS Safety Report 8307506-3 (Version None)
Quarter: 2012Q2

REPORT INFORMATION
  Report Type: 
  Country: None (occurrence: None)
  Receive Date: 20120424
  Receipt Date: 20120417
  Transmission Date: 20120825
  Serious: Yes (Hospitalization)
  Sender: FDA-Public Use
  Company Number: DE-SANOFI-AVENTIS-2011SA054535

PATIENT
  Age: 45 Year
  Sex: Female
  Weight: 82 kg

DRUGS (8)
  1. NEULASTA [Suspect]
     Indication: NEUTROPENIA
     Route: 058
     Dates: start: 20110809, end: 20110809
  2. DOCETAXEL [Suspect]
     Indication: BREAST CANCER
     Route: 041
     Dates: start: 20110808, end: 20110808
  3. NEULASTA [Suspect]
     Indication: PREMEDICATION
     Route: 058
     Dates: start: 20110809, end: 20110809
  4. DEXAMETHASONE [Concomitant]
     Indication: PREMEDICATION
     Route: 048
     Dates: start: 20110807, end: 20110809
  5. EMEND [Concomitant]
     Route: 048
     Dates: start: 20110807, end: 20110808
  6. EMEND [Concomitant]
     Indication: PROPHYLAXIS
     Route: 048
     Dates: start: 20110806, end: 20110806
  7. CLEMASTINE [Concomitant]
     Route: 042
     Dates: start: 20110806, end: 20110808
  8. CIMETIDINE [Concomitant]
     Indication: PREMEDICATION
     Route: 042
     Dates: start: 20110808, end: 20110808

REACTIONS (1)
  - INTERVERTEBRAL DISC PROTRUSION [None]
